FAERS Safety Report 4427455-0 (Version None)
Quarter: 2004Q3

REPORT INFORMATION
  Report Type: 
  Country: None (occurrence: None)
  Receive Date: 20040812
  Receipt Date: 20040804
  Transmission Date: 20050211
  Serious: Yes (Disabling)
  Sender: FDA-Public Use
  Company Number: HQ8393213NOV2001

PATIENT
  Age: 50 Year
  Sex: Female

DRUGS (34)
  1. DIMETAPP [Suspect]
     Indication: HYPERSENSITIVITY
     Dosage: ORAL
     Route: 048
  2. DIMETAPP [Suspect]
     Indication: INFLUENZA
     Dosage: ORAL
     Route: 048
  3. DIMETAPP [Suspect]
     Indication: NASOPHARYNGITIS
     Dosage: ORAL
     Route: 048
  4. DIMETAPP [Suspect]
     Indication: SINUS CONGESTION
     Dosage: ORAL
     Route: 048
  5. ALKA-SELTZER PLUS COLD (ACETYLSALICYLIC ACID/CHLORPHENAMINE MALEATE/PH [Suspect]
     Indication: HYPERSENSITIVITY
     Dosage: ORAL
     Route: 048
  6. ALKA-SELTZER PLUS COLD (ACETYLSALICYLIC ACID/CHLORPHENAMINE MALEATE/PH [Suspect]
     Indication: INFLUENZA
     Dosage: ORAL
     Route: 048
  7. ALKA-SELTZER PLUS COLD (ACETYLSALICYLIC ACID/CHLORPHENAMINE MALEATE/PH [Suspect]
     Indication: NASOPHARYNGITIS
     Dosage: ORAL
     Route: 048
  8. ALKA-SELTZER PLUS COLD (ACETYLSALICYLIC ACID/CHLORPHENAMINE MALEATE/PH [Suspect]
     Indication: SINUS CONGESTION
     Dosage: ORAL
     Route: 048
  9. COMTREX (CHLORPHENAMINE MALEATE/DEXTROMETHORPHAN HYDROBROMIDE/PARACETA [Suspect]
     Indication: HYPERSENSITIVITY
     Dosage: ORAL
     Route: 048
  10. COMTREX (CHLORPHENAMINE MALEATE/DEXTROMETHORPHAN HYDROBROMIDE/PARACETA [Suspect]
     Indication: INFLUENZA
     Dosage: ORAL
     Route: 048
  11. COMTREX (CHLORPHENAMINE MALEATE/DEXTROMETHORPHAN HYDROBROMIDE/PARACETA [Suspect]
     Indication: NASOPHARYNGITIS
     Dosage: ORAL
     Route: 048
  12. COMTREX (CHLORPHENAMINE MALEATE/DEXTROMETHORPHAN HYDROBROMIDE/PARACETA [Suspect]
     Indication: SINUS CONGESTION
     Dosage: ORAL
     Route: 048
  13. CONTAC (CHLORPHENAMINE MALEATE/DEXTROMETHORPHAN HYDROBROMIDE/PARACETAM [Suspect]
     Indication: HYPERSENSITIVITY
     Dosage: ORAL
     Route: 048
  14. CONTAC (CHLORPHENAMINE MALEATE/DEXTROMETHORPHAN HYDROBROMIDE/PARACETAM [Suspect]
     Indication: INFLUENZA
     Dosage: ORAL
     Route: 048
  15. CONTAC (CHLORPHENAMINE MALEATE/DEXTROMETHORPHAN HYDROBROMIDE/PARACETAM [Suspect]
     Indication: NASOPHARYNGITIS
     Dosage: ORAL
     Route: 048
  16. CONTAC (CHLORPHENAMINE MALEATE/DEXTROMETHORPHAN HYDROBROMIDE/PARACETAM [Suspect]
     Indication: SINUS CONGESTION
     Dosage: ORAL
     Route: 048
  17. DEXATRIM (CAFFEINE/PHENYLPROPANOLAMINE HYDROCHLORIDE) [Suspect]
     Dosage: ORAL
     Route: 048
  18. NYQUIL NIGHTTIME COLD/FLU MEDICINE (DEXTROMETHORPHAN HYDROBROMIDE/DOXY [Suspect]
     Dosage: UNKNOWN DOSE TAKEN 3-4 DAYS BEFORE THE STROKE, ORAL
     Route: 048
     Dates: start: 19970101
  19. ROBITUSSIN CF (GUAIFENESIN/DEXTROMETHORPHAN/PHENYLPROPANOLAMINE, SYRUP [Suspect]
     Indication: HYPERSENSITIVITY
     Dosage: ^ON AND OFF FOR YEARS UNTIL STROKE; TAKEN 3-4 DAYS BEFORE STROKE^, ORAL
     Route: 048
  20. ROBITUSSIN CF (GUAIFENESIN/DEXTROMETHORPHAN/PHENYLPROPANOLAMINE, SYRUP [Suspect]
     Indication: INFLUENZA
     Dosage: ^ON AND OFF FOR YEARS UNTIL STROKE; TAKEN 3-4 DAYS BEFORE STROKE^, ORAL
     Route: 048
  21. ROBITUSSIN CF (GUAIFENESIN/DEXTROMETHORPHAN/PHENYLPROPANOLAMINE, SYRUP [Suspect]
     Indication: NASOPHARYNGITIS
     Dosage: ^ON AND OFF FOR YEARS UNTIL STROKE; TAKEN 3-4 DAYS BEFORE STROKE^, ORAL
     Route: 048
  22. ROBITUSSIN CF (GUAIFENESIN/DEXTROMETHORPHAN/PHENYLPROPANOLAMINE, SYRUP [Suspect]
     Indication: SINUS CONGESTION
     Dosage: ^ON AND OFF FOR YEARS UNTIL STROKE; TAKEN 3-4 DAYS BEFORE STROKE^, ORAL
     Route: 048
  23. TAVIST D [Suspect]
     Indication: HYPERSENSITIVITY
     Dosage: ORAL
     Route: 048
  24. TAVIST D [Suspect]
     Indication: INFLUENZA
     Dosage: ORAL
     Route: 048
  25. TAVIST D [Suspect]
     Indication: NASOPHARYNGITIS
     Dosage: ORAL
     Route: 048
  26. TAVIST D [Suspect]
     Indication: SINUS CONGESTION
     Dosage: ORAL
     Route: 048
  27. TRIAMINIC SRT [Suspect]
     Indication: HYPERSENSITIVITY
     Dosage: ORAL
     Route: 048
  28. TRIAMINIC SRT [Suspect]
     Indication: INFLUENZA
     Dosage: ORAL
     Route: 048
  29. TRIAMINIC SRT [Suspect]
     Indication: NASOPHARYNGITIS
     Dosage: ORAL
     Route: 048
  30. TRIAMINIC SRT [Suspect]
     Indication: SINUS CONGESTION
     Dosage: ORAL
     Route: 048
  31. UNKNOWN [Suspect]
     Indication: HYPERSENSITIVITY
     Dosage: ORAL
     Route: 048
  32. UNKNOWN [Suspect]
     Indication: INFLUENZA
     Dosage: ORAL
     Route: 048
  33. UNKNOWN [Suspect]
     Indication: NASOPHARYNGITIS
     Dosage: ORAL
     Route: 048
  34. UNKNOWN [Suspect]
     Indication: SINUS CONGESTION
     Dosage: ORAL
     Route: 048

REACTIONS (13)
  - ARTERIAL STENOSIS [None]
  - CEREBRAL ARTERY EMBOLISM [None]
  - CEREBRAL ATHEROSCLEROSIS [None]
  - CEREBRAL INFARCTION [None]
  - CEREBROVASCULAR ACCIDENT [None]
  - CONCUSSION [None]
  - ELECTROCARDIOGRAM POOR R-WAVE PROGRESSION [None]
  - ELECTROCARDIOGRAM ST SEGMENT ELEVATION [None]
  - ROAD TRAFFIC ACCIDENT [None]
  - SURGERY [None]
  - SYNCOPE [None]
  - VENTRICULAR HYPERTROPHY [None]
  - VERTEBRAL ARTERY STENOSIS [None]
